FAERS Safety Report 16744759 (Version 2)
Quarter: 2019Q3

REPORT INFORMATION
  Report Type: Spontaneous
  Country: US (occurrence: US)
  Receive Date: 20190827
  Receipt Date: 20190828
  Transmission Date: 20191005
  Serious: Yes (Other)
  Sender: FDA-Public Use
  Company Number: US-PFIZER INC-2019367649

PATIENT
  Age: 74 Year
  Sex: Female

DRUGS (2)
  1. LYRICA [Suspect]
     Active Substance: PREGABALIN
     Dosage: UNK, 1X/DAY
  2. LYRICA [Suspect]
     Active Substance: PREGABALIN
     Dosage: 75 MG, 1X/DAY (TAKE 1 CAPSULE DAILY)
     Route: 048

REACTIONS (5)
  - Cystic fibrosis [Unknown]
  - Headache [Unknown]
  - Cerebrovascular accident [Unknown]
  - Mobility decreased [Unknown]
  - Weight increased [Unknown]
